FAERS Safety Report 7396841-1 (Version None)
Quarter: 2011Q1

REPORT INFORMATION
  Report Type: 
  Country: None (occurrence: None)
  Receive Date: 20110328
  Receipt Date: 20110309
  Transmission Date: 20110831
  Serious: Yes (Death)
  Sender: FDA-Public Use
  Company Number: 2011P1004874

PATIENT
  Age: 34 Year
  Sex: Female

DRUGS (8)
  1. HYDROCHLOROTHIAZIDE / METOPROLOL (NO PREF. NAME) [Suspect]
  2. ZOLPIDEM TARTRATE [Suspect]
  3. SODIUM BICARBONATE [Suspect]
  4. DEXTROAMPHETAMINE SACCHARATE, SUFATE/AMPHETAMINE ASPARTATE, SULFATE [Suspect]
  5. ACETAMINOPHEN / DIPHENHYDRAMINE (NO PREF. NAME) [Suspect]
  6. BENZODIAZEPINE (NO PREF. NAME) [Suspect]
  7. FLUOXETINE [Suspect]
  8. LORAZEPAM [Suspect]

REACTIONS (2)
  - INTENTIONAL DRUG MISUSE [None]
  - COMPLETED SUICIDE [None]
